FAERS Safety Report 15286449 (Version 1)
Quarter: 2018Q4

REPORT INFORMATION
  Report Type: Spontaneous
  Country: DE (occurrence: DE)
  Receive Date: 20180816
  Receipt Date: 20180816
  Transmission Date: 20190204
  Serious: Yes (Life-Threatening, Hospitalization)
  Sender: FDA-Public Use
  Company Number: DE-TEVA-2018-DE-927132

PATIENT
  Age: 41 Year
  Sex: Male

DRUGS (1)
  1. CLINDAMYCIN-RATIO PHARM 600 MG [Suspect]
     Active Substance: CLINDAMYCIN
     Indication: SKIN INFECTION
     Route: 048
     Dates: start: 20180604, end: 20180611

REACTIONS (2)
  - Rash macular [Not Recovered/Not Resolved]
  - Drug eruption [Not Recovered/Not Resolved]

NARRATIVE: CASE EVENT DATE: 20180611
